FAERS Safety Report 16635559 (Version 1)
Quarter: 2019Q3

REPORT INFORMATION
  Report Type: Spontaneous
  Country: GB (occurrence: GB)
  Receive Date: 20190726
  Receipt Date: 20190726
  Transmission Date: 20191004
  Serious: Yes (Other)
  Sender: FDA-Public Use
  Company Number: GB-TEVA-2019-GB-1083435

PATIENT
  Age: 67 Year
  Sex: Female
  Weight: 63 kg

DRUGS (5)
  1. CLOBETASONE BUTYRATE [Concomitant]
     Active Substance: CLOBETASONE BUTYRATE
     Dosage: USE IF HYDROCORTISONE NOT WORKED, 1 DOSAGE FORM
     Dates: start: 20170712
  2. COCODAMOL [Concomitant]
     Active Substance: ACETAMINOPHEN\CODEINE PHOSPHATE
     Dosage: TAKE 2, THREE OR FOUR TIMES DAILY, 2 DOSAGE FORM
     Dates: start: 20170905
  3. ZEROCREAM [Concomitant]
     Dosage: USE INSTEAD OF SOAP, 2 DOSAGE FORM
     Dates: start: 20170712
  4. TRIMETHOPRIM. [Suspect]
     Active Substance: TRIMETHOPRIM
     Dosage: FOR SEVEN DAYS, 400 MG
     Dates: start: 20190613
  5. HYDROCORTISONE. [Concomitant]
     Active Substance: HYDROCORTISONE
     Dosage: START WITH THIS.
     Dates: start: 20170712

REACTIONS (1)
  - Vision blurred [Unknown]

NARRATIVE: CASE EVENT DATE: 20190614
